FAERS Safety Report 5259872-3 (Version None)
Quarter: 2007Q1

REPORT INFORMATION
  Report Type: 
  Country: None (occurrence: None)
  Receive Date: 20070309
  Receipt Date: 20070209
  Transmission Date: 20070707
  Serious: Yes (Hospitalization)
  Sender: FDA-Public Use
  Company Number: GB-BRISTOL-MYERS SQUIBB COMPANY-13705066

PATIENT
  Age: 72 Year
  Sex: Male

DRUGS (9)
  1. GLUCOPHAGE [Suspect]
     Indication: DIABETES MELLITUS
     Route: 048
  2. RAMIPRIL [Suspect]
     Indication: HYPERTENSION
     Route: 048
  3. ALLOPURINOL [Concomitant]
     Route: 048
     Dates: start: 19950101
  4. ASPIRIN [Concomitant]
     Route: 048
     Dates: start: 19950101
  5. ATENOLOL [Concomitant]
     Route: 048
     Dates: start: 19950101
  6. EZETIMIBE [Concomitant]
     Route: 048
     Dates: start: 20050101
  7. OMEPRAZOLE [Concomitant]
     Route: 048
     Dates: start: 20050101
  8. PERSANTIN [Concomitant]
     Route: 048
     Dates: start: 20050101
  9. SIMVASTATIN [Concomitant]
     Route: 048
     Dates: start: 19960101

REACTIONS (1)
  - BLOOD CREATININE INCREASED [None]
